FAERS Safety Report 4448333-7 (Version None)
Quarter: 2004Q3

REPORT INFORMATION
  Report Type: 
  Country: None (occurrence: None)
  Receive Date: 20040909
  Receipt Date: 20040827
  Transmission Date: 20050211
  Serious: Yes (Death, Hospitalization)
  Sender: FDA-Public Use
  Company Number: 2004055469

PATIENT
  Age: 60 Year
  Sex: Female

DRUGS (9)
  1. NEURONTIN [Suspect]
     Indication: ILL-DEFINED DISORDER
     Dosage: ORAL
     Route: 048
     Dates: start: 20040521
  2. METFORMIN HCL [Suspect]
     Indication: ILL-DEFINED DISORDER
     Dosage: 3 GRAM (1 IN 1 D), ORAL
     Route: 048
  3. RIFAMPICIN [Suspect]
     Indication: ILL-DEFINED DISORDER
     Dosage: (1 D), ORAL
     Route: 048
     Dates: start: 20040521
  4. NITROFURANTOIN [Suspect]
     Indication: ILL-DEFINED DISORDER
     Dosage: (1 D), ORAL
     Route: 048
     Dates: start: 20040622
  5. OFLOXACIN [Suspect]
     Indication: ILL-DEFINED DISORDER
     Dosage: (1 D), ORAL
     Route: 048
     Dates: start: 20040521
  6. RILMENIDINE (RILMENIDINE) [Suspect]
     Indication: ILL-DEFINED DISORDER
     Dosage: (1 D), ORAL
     Route: 048
     Dates: start: 20040601
  7. IRBESARTAN (IRBESARTAN) [Concomitant]
  8. FERROUS SULFATE TAB [Concomitant]
  9. ASCORBIC ACID [Concomitant]

REACTIONS (7)
  - CARDIAC ARREST [None]
  - GRAND MAL CONVULSION [None]
  - HEPATIC FAILURE [None]
  - KETOACIDOSIS [None]
  - LACTIC ACIDOSIS [None]
  - RESPIRATORY DISTRESS [None]
  - SEPTIC SHOCK [None]
